FAERS Safety Report 12783966 (Version 2)
Quarter: 2017Q1

REPORT INFORMATION
  Report Type: Report from Study
  Country: AU (occurrence: AU)
  Receive Date: 20160927
  Receipt Date: 20170301
  Transmission Date: 20170428
  Serious: Yes (Other)
  Sender: FDA-Public Use
  Company Number: AU-REGENERON PHARMACEUTICALS, INC.-2014-20335

PATIENT

DRUGS (3)
  1. EYLEA [Suspect]
     Active Substance: AFLIBERCEPT
     Dosage: 2 MG, Q4WK
     Route: 031
  2. XALATAN [Concomitant]
     Active Substance: LATANOPROST
     Indication: GLAUCOMA
     Dosage: UNK, OM
     Route: 047
  3. EYLEA [Suspect]
     Active Substance: AFLIBERCEPT
     Indication: NEOVASCULAR AGE-RELATED MACULAR DEGENERATION
     Dosage: 2 MG, EVERY 6-8 WEEKS
     Route: 031
     Dates: start: 20120930

REACTIONS (7)
  - Nightmare [Unknown]
  - Neovascular age-related macular degeneration [Unknown]
  - Eye pain [Unknown]
  - Product use issue [Unknown]
  - Nervousness [Unknown]
  - Prostate cancer [Unknown]
  - Metastases to spine [Unknown]

NARRATIVE: CASE EVENT DATE: 201501
